FAERS Safety Report 7735565-5 (Version None)
Quarter: 2011Q3

REPORT INFORMATION
  Report Type: 
  Country: None (occurrence: None)
  Receive Date: 20110907
  Receipt Date: 20110823
  Transmission Date: 20111222
  Serious: Yes (Death, Hospitalization, Other)
  Sender: FDA-Public Use
  Company Number: US-JUTA GMBH-2011-14018

PATIENT
  Age: 43 Year
  Sex: Male

DRUGS (2)
  1. PRAMIPEXOLE DIHYDROCHLORIDE [Suspect]
     Indication: PARKINSON'S DISEASE
     Dosage: 4.5 MG, DAILY
     Route: 065
  2. PRAMIPEXOLE DIHYDROCHLORIDE [Suspect]
     Dosage: 3 MG, DAILY
     Route: 065

REACTIONS (7)
  - HYPERSEXUALITY [None]
  - SUICIDAL IDEATION [None]
  - INSOMNIA [None]
  - FLIGHT OF IDEAS [None]
  - COMPLETED SUICIDE [None]
  - MANIA [None]
  - ECONOMIC PROBLEM [None]
